FAERS Safety Report 10663313 (Version 1)
Quarter: 2014Q4

REPORT INFORMATION
  Report Type: Spontaneous
  Country: GB (occurrence: GB)
  Receive Date: 20141218
  Receipt Date: 20141218
  Transmission Date: 20150529
  Serious: Yes (Other)
  Sender: FDA-Public Use
  Company Number: GB-ALLERGAN-1425567US

PATIENT
  Age: 26 Year
  Sex: Female

DRUGS (3)
  1. BOTOX [Suspect]
     Active Substance: ONABOTULINUMTOXINA
     Dosage: UNK, SINGLE
     Dates: start: 201207, end: 201207
  2. BOTOX [Suspect]
     Active Substance: ONABOTULINUMTOXINA
     Indication: SALIVARY HYPERSECRETION
     Dosage: UNK, SINGLE
     Dates: start: 201303, end: 201303
  3. BOTOX [Suspect]
     Active Substance: ONABOTULINUMTOXINA
     Dosage: UNK, SINGLE
     Dates: start: 201112, end: 201112

REACTIONS (13)
  - Dysphagia [Recovering/Resolving]
  - Cough [Recovering/Resolving]
  - Dysgeusia [Unknown]
  - Off label use [Unknown]
  - Choking [Unknown]
  - Nausea [Unknown]
  - Pallor [Unknown]
  - Choking [Recovering/Resolving]
  - Secretion discharge [Recovering/Resolving]
  - Decreased appetite [Unknown]
  - Weight decreased [Unknown]
  - Productive cough [Unknown]
  - Dyspnoea [Recovering/Resolving]
